FAERS Safety Report 10044919 (Version 1)
Quarter: 2014Q1

REPORT INFORMATION
  Report Type: Spontaneous
  Country: CN (occurrence: None)
  Receive Date: 20140326
  Receipt Date: 20140326
  Transmission Date: 20141002
  Serious: Yes (Death, Life-Threatening)
  Sender: FDA-Public Use
  Company Number: 2014HINLIT0252

PATIENT
  Age: 72 Year
  Sex: Female

DRUGS (10)
  1. HYDRALAZINE [Suspect]
     Indication: HYPERTENSION
  2. VALSARTAN (VALSARTAN) [Concomitant]
  3. ATORVASTATIN (ATORVASTATIN) [Concomitant]
  4. CALCITRIOL [Concomitant]
  5. DARBEPOETIN ALFA [Concomitant]
  6. IRON SULPHATE [Concomitant]
  7. FOLIC ACID [Concomitant]
  8. INSULIN ISOPHANE (HUMAN) [Concomitant]
  9. CALCIUM CARBONATE [Concomitant]
  10. FUROSEMIDE [Concomitant]

REACTIONS (7)
  - Toxic epidermal necrolysis [None]
  - Leukopenia [None]
  - Hyperglycaemia [None]
  - Azotaemia [None]
  - Sepsis [None]
  - Tachyarrhythmia [None]
  - Cardiac arrest [None]
